FAERS Safety Report 4528642-3 (Version None)
Quarter: 2004Q4

REPORT INFORMATION
  Report Type: 
  Country: None (occurrence: None)
  Receive Date: 20041216
  Receipt Date: 20041206
  Transmission Date: 20050328
  Serious: Yes (Other)
  Sender: FDA-Public Use
  Company Number: BR-GLAXOSMITHKLINE-A0536231A

PATIENT
  Age: 35 Year
  Sex: Female
  Weight: 50 kg

DRUGS (1)
  1. NIQUITIN 21MG [Suspect]
     Route: 062

REACTIONS (4)
  - ANXIETY [None]
  - DIZZINESS [None]
  - HALLUCINATION [None]
  - VOMITING [None]
